FAERS Safety Report 5386563-0 (Version None)
Quarter: 2007Q3

REPORT INFORMATION
  Report Type: 
  Country: None (occurrence: None)
  Receive Date: 20070713
  Receipt Date: 20070710
  Transmission Date: 20080115
  Serious: Yes (Death)
  Sender: FDA-Public Use
  Company Number: A0663492B

PATIENT
  Sex: Female
  Weight: 0.6 kg

DRUGS (2)
  1. COMBIVIR [Suspect]
     Indication: HIV INFECTION
     Dosage: 2TABS PER DAY
     Dates: start: 20070412
  2. VIRACEPT [Concomitant]
     Indication: HIV INFECTION
     Dosage: 2500MG PER DAY
     Dates: start: 20070412

REACTIONS (2)
  - DRUG EXPOSURE DURING PREGNANCY [None]
  - PREMATURE BABY [None]
